FAERS Safety Report 10707472 (Version 1)
Quarter: 2015Q1

REPORT INFORMATION
  Report Type: Spontaneous
  Country: US (occurrence: None)
  Receive Date: 20150112
  Receipt Date: 20150112
  Transmission Date: 20150721
  Serious: Yes (Death)
  Sender: FDA-Public Use
  Company Number: None

PATIENT
  Age: 81 Year
  Sex: Male
  Weight: 66 kg

DRUGS (2)
  1. CARBOPLATIN. [Suspect]
     Active Substance: CARBOPLATIN
     Dates: end: 20141121
  2. TAXOL [Suspect]
     Active Substance: PACLITAXEL
     Dates: end: 20141121

REACTIONS (3)
  - Dyspnoea [None]
  - Pyrexia [None]
  - Neutropenia [None]

NARRATIVE: CASE EVENT DATE: 20141205
